FAERS Safety Report 5509793-3 (Version None)
Quarter: 2007Q4

REPORT INFORMATION
  Report Type: 
  Country: None (occurrence: None)
  Receive Date: 20071107
  Receipt Date: 20071107
  Transmission Date: 20080405
  Serious: No
  Sender: FDA-Public Use
  Company Number: None

PATIENT
  Age: 83 Year
  Sex: Male

DRUGS (2)
  1. HEPARIN [Suspect]
     Dosage: 5000UNITS BID SQ
     Route: 058
     Dates: start: 20070714, end: 20070717
  2. ASPIRIN [Suspect]
     Dosage: 325MG EVERY DAY PO
     Route: 048
     Dates: start: 20070125, end: 20070717

REACTIONS (1)
  - EPISTAXIS [None]
